FAERS Safety Report 8805966 (Version 1)
Quarter: 2012Q4

REPORT INFORMATION
  Report Type: Spontaneous
  Country: US (occurrence: None)
  Receive Date: 20120917
  Receipt Date: 20120917
  Transmission Date: 20130627
  Serious: Yes (Disabling)
  Sender: FDA-Public Use
  Company Number: 2280705-2012-00113

PATIENT
  Sex: Male

DRUGS (2)
  1. ARM AND HAMMER BAKING SODA [Suspect]
     Indication: PREVENTION
     Dosage: used to brush teeth
     Route: 004
     Dates: start: 201207
  2. ARM AND HAMMER BAKING SODA [Suspect]
     Indication: TOOTH DECAY
     Dosage: used to brush teeth
     Route: 004
     Dates: start: 201207

REACTIONS (1)
  - Oral infection [None]
